FAERS Safety Report 16939322 (Version 1)
Quarter: 2019Q4

REPORT INFORMATION
  Report Type: Spontaneous
  Country: JP (occurrence: JP)
  Receive Date: 20191021
  Receipt Date: 20191021
  Transmission Date: 20200122
  Serious: Yes (Other)
  Sender: FDA-Public Use
  Company Number: JP-TEVA-2016-JP-002871J

PATIENT
  Sex: Female

DRUGS (2)
  1. CERCINE [Suspect]
     Active Substance: DIAZEPAM
     Indication: ABORTION
     Route: 065
  2. KETALAR [Concomitant]
     Active Substance: KETAMINE HYDROCHLORIDE
     Route: 065

REACTIONS (4)
  - Respiratory depression [Unknown]
  - Abortion induced [Unknown]
  - Oxygen saturation decreased [Unknown]
  - Maternal exposure during pregnancy [Unknown]
